FAERS Safety Report 11741311 (Version 1)
Quarter: 2015Q4

REPORT INFORMATION
  Report Type: Spontaneous
  Country: US (occurrence: US)
  Receive Date: 20151116
  Receipt Date: 20151116
  Transmission Date: 20160304
  Serious: No
  Sender: FDA-Public Use
  Company Number: US-ASTRAZENECA-2015SF05009

PATIENT
  Sex: Male
  Weight: 74.8 kg

DRUGS (1)
  1. NEXIUM [Suspect]
     Active Substance: ESOMEPRAZOLE MAGNESIUM
     Indication: DYSPEPSIA
     Route: 048
     Dates: start: 201509

REACTIONS (4)
  - Dyspepsia [Unknown]
  - Discomfort [Unknown]
  - Drug prescribing error [Unknown]
  - Sleep disorder [Unknown]
